FAERS Safety Report 8937216 (Version 1)
Quarter: 2012Q4

REPORT INFORMATION
  Report Type: Spontaneous
  Country: US (occurrence: None)
  Receive Date: 20121128
  Receipt Date: 20121128
  Transmission Date: 20130627
  Serious: Yes (Other)
  Sender: FDA-Public Use
  Company Number: None

PATIENT
  Age: 56 Year
  Sex: Female
  Weight: 83.92 kg

DRUGS (1)
  1. CYMBALTA 60MG ELI LILLY [Suspect]
     Indication: MAJOR DEPRESSIVE DISORDER NOS
     Route: 048
     Dates: start: 20090326, end: 20120326

REACTIONS (8)
  - Dizziness [None]
  - Dizziness [None]
  - Hyperhidrosis [None]
  - Anxiety [None]
  - Irritability [None]
  - Feeling drunk [None]
  - Gait disturbance [None]
  - Drug withdrawal syndrome [None]
